FAERS Safety Report 18431888 (Version 1)
Quarter: 2020Q4

REPORT INFORMATION
  Report Type: Other
  Country: TW (occurrence: TW)
  Receive Date: 20201027
  Receipt Date: 20201027
  Transmission Date: 20210114
  Serious: Yes (Death, Other)
  Sender: FDA-Public Use
  Company Number: TW-DEXPHARM-20200974

PATIENT
  Age: 52 Year
  Sex: Female

DRUGS (4)
  1. NIVOLUMAB [Interacting]
     Active Substance: NIVOLUMAB
     Indication: LUNG ADENOCARCINOMA STAGE IV
  2. OMEPRAZOLE. [Interacting]
     Active Substance: OMEPRAZOLE
  3. ESOMEPRAZOLE NON DEXCEL PRODUCT [Suspect]
     Active Substance: ESOMEPRAZOLE
  4. ESOMEPRAZOLE NON DEXCEL PRODUCT [Interacting]
     Active Substance: ESOMEPRAZOLE

REACTIONS (2)
  - Drug interaction [Recovered/Resolved]
  - Stevens-Johnson syndrome [Recovered/Resolved]
